FAERS Safety Report 9817749 (Version 4)
Quarter: 2016Q4

REPORT INFORMATION
  Report Type: Report from Study
  Country: US (occurrence: US)
  Receive Date: 20140115
  Receipt Date: 20161018
  Transmission Date: 20170207
  Serious: Yes (Hospitalization, Disabling, Other)
  Sender: FDA-Public Use
  Company Number: US-ROCHE-1313547

PATIENT
  Age: 48 Year
  Sex: Female
  Weight: 59.02 kg

DRUGS (10)
  1. HERCEPTIN [Suspect]
     Active Substance: TRASTUZUMAB
     Indication: HER-2 POSITIVE BREAST CANCER
     Route: 042
     Dates: start: 201212, end: 201301
  2. HERCEPTIN [Suspect]
     Active Substance: TRASTUZUMAB
     Route: 042
     Dates: start: 201312, end: 2014
  3. SYNTHROID [Concomitant]
     Active Substance: LEVOTHYROXINE SODIUM
     Route: 048
  4. FLUDROCORTISONE [Concomitant]
     Active Substance: FLUDROCORTISONE
     Indication: HYPOTENSION
     Route: 048
     Dates: start: 201606
  5. MIDODRINE [Concomitant]
     Active Substance: MIDODRINE
  6. OXYCODONE [Concomitant]
     Active Substance: OXYCODONE
     Indication: PAIN
     Dosage: 5/325 MG, AS NEEDED
     Route: 048
     Dates: start: 20131107
  7. LETROZOLE. [Concomitant]
     Active Substance: LETROZOLE
     Route: 048
     Dates: start: 20131025
  8. OXYCODONE [Concomitant]
     Active Substance: OXYCODONE
     Dosage: 5/325
     Route: 048
     Dates: start: 2010
  9. VITAMIN C [Concomitant]
     Active Substance: ASCORBIC ACID
     Route: 048
  10. PERCOCET [Concomitant]
     Active Substance: ACETAMINOPHEN\OXYCODONE HYDROCHLORIDE
     Indication: PAIN
     Dosage: 5/325 MG
     Route: 048
     Dates: start: 20131107

REACTIONS (33)
  - Fibromyalgia [Unknown]
  - Cardiac failure [Not Recovered/Not Resolved]
  - Ejection fraction decreased [Recovered/Resolved]
  - Breast mass [Unknown]
  - Breast swelling [Unknown]
  - Lyme disease [Unknown]
  - Tooth loss [Unknown]
  - Feeding disorder [Recovered/Resolved]
  - Abasia [Recovered/Resolved]
  - Hypertension [Recovered/Resolved]
  - Hypopnoea [Recovered/Resolved]
  - Constipation [Recovered/Resolved]
  - Cardiac disorder [Not Recovered/Not Resolved]
  - Dizziness [Recovered/Resolved]
  - Blood pressure fluctuation [Not Recovered/Not Resolved]
  - Chest pain [Unknown]
  - Dizziness [Unknown]
  - Pain [Unknown]
  - Asthenia [Not Recovered/Not Resolved]
  - Insomnia [Unknown]
  - Weight decreased [Recovered/Resolved]
  - Chest pain [Not Recovered/Not Resolved]
  - Loss of consciousness [Not Recovered/Not Resolved]
  - Nausea [Not Recovered/Not Resolved]
  - Pneumonia [Recovered/Resolved]
  - Hypotension [Not Recovered/Not Resolved]
  - Dysarthria [Unknown]
  - Nausea [Unknown]
  - Feeling abnormal [Unknown]
  - Fatigue [Recovered/Resolved]
  - Depression [Not Recovered/Not Resolved]
  - Vitamin D decreased [Unknown]
  - Dyspnoea [Recovered/Resolved]

NARRATIVE: CASE EVENT DATE: 201310
